FAERS Safety Report 23380857 (Version 1)
Quarter: 2024Q1

REPORT INFORMATION
  Report Type: Spontaneous
  Country: FR (occurrence: FR)
  Receive Date: 20240109
  Receipt Date: 20240109
  Transmission Date: 20240410
  Serious: Yes (Death)
  Sender: FDA-Public Use
  Company Number: None

PATIENT
  Age: 67 Year
  Sex: Female
  Weight: 65 kg

DRUGS (1)
  1. COLUMVI [Suspect]
     Active Substance: GLOFITAMAB-GXBM
     Indication: Diffuse large B-cell lymphoma
     Route: 065
     Dates: start: 20231207

REACTIONS (4)
  - Multiple organ dysfunction syndrome [Fatal]
  - Pyrexia [Fatal]
  - Hypotension [Fatal]
  - Respiratory distress [Fatal]

NARRATIVE: CASE EVENT DATE: 20231212
